FAERS Safety Report 11286720 (Version 1)
Quarter: 2015Q3

REPORT INFORMATION
  Report Type: Spontaneous
  Country: BR (occurrence: BR)
  Receive Date: 20150721
  Receipt Date: 20150721
  Transmission Date: 20151125
  Serious: Yes (Other)
  Sender: FDA-Public Use
  Company Number: BR-ASTRAZENECA-2015SE65483

PATIENT
  Age: 759 Month
  Sex: Male
  Weight: 82 kg

DRUGS (9)
  1. SYMBICORT [Suspect]
     Active Substance: BUDESONIDE\FORMOTEROL FUMARATE DIHYDRATE
     Indication: ASTHMA
     Dosage: 160/4.5 MCG, TWO TIMES A DAY
     Route: 055
     Dates: start: 2011, end: 2013
  2. GLIFAGE XR [Suspect]
     Active Substance: METFORMIN HYDROCHLORIDE
     Indication: DIABETES MELLITUS MANAGEMENT
     Dosage: NON AZ PRODUCT, 500 MG, EVERY DAY
     Route: 048
     Dates: start: 2011
  3. MICARDIS [Concomitant]
     Active Substance: TELMISARTAN
     Indication: BLOOD PRESSURE ABNORMAL
     Dates: start: 2005
  4. SYMBICORT [Suspect]
     Active Substance: BUDESONIDE\FORMOTEROL FUMARATE DIHYDRATE
     Indication: ASTHMA
     Dosage: 320/9 MCG, TWO TIMES A DAY
     Route: 055
     Dates: start: 2013
  5. AVAMYS [Concomitant]
     Active Substance: FLUTICASONE FUROATE
     Indication: ASTHMATIC CRISIS
     Dosage: AT NIGHT
     Route: 045
     Dates: start: 201412
  6. AVAMYS [Concomitant]
     Active Substance: FLUTICASONE FUROATE
     Indication: HYPERSENSITIVITY
     Dosage: AT NIGHT
     Route: 045
     Dates: start: 201412
  7. NEXIUM [Suspect]
     Active Substance: ESOMEPRAZOLE MAGNESIUM
     Indication: OESOPHAGEAL CANDIDIASIS
     Route: 048
     Dates: start: 20150702
  8. ROSUVASTATIN [Suspect]
     Active Substance: ROSUVASTATIN
     Indication: BLOOD CHOLESTEROL ABNORMAL
     Route: 048
     Dates: start: 2013
  9. NEXIUM [Suspect]
     Active Substance: ESOMEPRAZOLE MAGNESIUM
     Indication: GASTROOESOPHAGEAL REFLUX DISEASE
     Route: 048
     Dates: start: 20150702

REACTIONS (7)
  - Asthmatic crisis [Recovered/Resolved]
  - Asthma [Recovered/Resolved]
  - Oesophageal candidiasis [Unknown]
  - Hyperglycaemia [Recovered/Resolved]
  - Off label use [Unknown]
  - Blood cholesterol increased [Recovered/Resolved]
  - Gastrooesophageal reflux disease [Unknown]

NARRATIVE: CASE EVENT DATE: 2011
